FAERS Safety Report 18468926 (Version 2)
Quarter: 2020Q4

REPORT INFORMATION
  Report Type: Spontaneous
  Country: US (occurrence: US)
  Receive Date: 20201105
  Receipt Date: 20201120
  Transmission Date: 20210114
  Serious: Yes (Other)
  Sender: FDA-Public Use
  Company Number: US-009507513-2010USA009729

PATIENT
  Age: 55 Year
  Sex: Female
  Weight: 88.5 kg

DRUGS (14)
  1. CYANOCOBALAMIN. [Concomitant]
     Active Substance: CYANOCOBALAMIN
     Indication: PERNICIOUS ANAEMIA
     Dosage: 1000 IU, UNK
     Route: 030
     Dates: start: 1998
  2. NEXIUM [Suspect]
     Active Substance: ESOMEPRAZOLE MAGNESIUM
     Indication: GASTROOESOPHAGEAL REFLUX DISEASE
  3. TOPROL XL [Suspect]
     Active Substance: METOPROLOL SUCCINATE
     Indication: AORTIC VALVE INCOMPETENCE
     Dosage: 100 MILLIGRAM, ONCE A DAY
     Route: 048
     Dates: start: 1996
  4. PHENOBARBITAL. [Concomitant]
     Active Substance: PHENOBARBITAL
     Indication: SEIZURE
     Dosage: 129.6 MG, DAILY
     Route: 048
  5. TOPROL XL [Suspect]
     Active Substance: METOPROLOL SUCCINATE
     Indication: HYPERTENSION
  6. GABAPENTIN. [Concomitant]
     Active Substance: GABAPENTIN
     Indication: PRODUCT USED FOR UNKNOWN INDICATION
     Route: 065
  7. FUROSEMIDE. [Concomitant]
     Active Substance: FUROSEMIDE
     Indication: OEDEMA
     Dosage: 40 MG, TWO TIMES A DAY
     Route: 048
  8. PRINIVIL [Suspect]
     Active Substance: LISINOPRIL
     Indication: HYPERTENSION
     Dosage: 40 MG, ONCE A DAY
     Route: 048
  9. NEXIUM [Suspect]
     Active Substance: ESOMEPRAZOLE MAGNESIUM
     Indication: ABDOMINAL HERNIA
     Dosage: 40 MILLIGRAM, UNK
     Route: 048
  10. GLUCOPHAGE [Concomitant]
     Active Substance: METFORMIN HYDROCHLORIDE
     Indication: DIABETES MELLITUS
     Dosage: 500 MILLIGRAM, ONCE A DAY
     Route: 048
  11. METOPROLOL. [Suspect]
     Active Substance: METOPROLOL
     Indication: PRODUCT USED FOR UNKNOWN INDICATION
     Route: 048
  12. NEXIUM [Suspect]
     Active Substance: ESOMEPRAZOLE MAGNESIUM
     Indication: ULCER
  13. NEXIUM [Suspect]
     Active Substance: ESOMEPRAZOLE MAGNESIUM
     Indication: IMPAIRED GASTRIC EMPTYING
  14. NEURONTIN [Concomitant]
     Active Substance: GABAPENTIN
     Indication: PRODUCT USED FOR UNKNOWN INDICATION
     Dosage: 600 MG, 3 TIMES DAILY
     Route: 048

REACTIONS (27)
  - Intentional product misuse [Unknown]
  - Pernicious anaemia [Unknown]
  - Nausea [Unknown]
  - Nerve compression [Unknown]
  - Asthenia [Unknown]
  - Cardiac murmur [Unknown]
  - Ulcer [Unknown]
  - Abdominal discomfort [Unknown]
  - Abdominal pain upper [Unknown]
  - Off label use [Unknown]
  - Feeding disorder [Unknown]
  - Gastrooesophageal reflux disease [Unknown]
  - Fall [Unknown]
  - Gait inability [Unknown]
  - Contusion [Unknown]
  - Generalised tonic-clonic seizure [Unknown]
  - Weight decreased [Not Recovered/Not Resolved]
  - Cerebrovascular accident [Recovered/Resolved with Sequelae]
  - Product dose omission issue [Unknown]
  - Diabetes mellitus [Unknown]
  - Oxygen consumption decreased [Unknown]
  - Regurgitation [Unknown]
  - Aortic valve incompetence [Unknown]
  - Cardiomegaly [Unknown]
  - Dyspepsia [Unknown]
  - Foot fracture [Unknown]
  - Thermal burn [Unknown]

NARRATIVE: CASE EVENT DATE: 1996
